FAERS Safety Report 5176302-0 (Version None)
Quarter: 2006Q4

REPORT INFORMATION
  Report Type: 
  Country: None (occurrence: None)
  Receive Date: 20061129
  Receipt Date: 20061115
  Transmission Date: 20070319
  Serious: Yes (Hospitalization)
  Sender: FDA-Public Use
  Company Number: 2006-149686-NL

PATIENT
  Age: 71 Year
  Sex: Female

DRUGS (2)
  1. BCG LIVE                       (BATCH #: 2K62092) [Suspect]
     Indication: BLADDER CANCER
     Dosage: INTRAVESICAL
     Route: 043
     Dates: start: 20060823, end: 20060920
  2. BCG LIVE                       (BATCH #: 2K62092) [Suspect]
     Indication: BLADDER CANCER
     Dosage: INTRAVESICAL
     Route: 043
     Dates: start: 20061018

REACTIONS (6)
  - CHILLS [None]
  - CYSTITIS [None]
  - HEPATITIS [None]
  - MALAISE [None]
  - RENAL FAILURE [None]
  - TREMOR [None]
